FAERS Safety Report 4524645-3 (Version None)
Quarter: 2004Q4

REPORT INFORMATION
  Report Type: 
  Country: None (occurrence: None)
  Receive Date: 20041117
  Receipt Date: 20030909
  Transmission Date: 20050328
  Serious: Yes (Other)
  Sender: FDA-Public Use
  Company Number: C2003-2380.01

PATIENT
  Age: 48 Year
  Sex: Female

DRUGS (7)
  1. CLOZAPINE [Suspect]
     Indication: SCHIZOPHRENIA
     Dosage: 50MG Q HS, ORAL
     Route: 048
     Dates: start: 20010721, end: 20030904
  2. CLOZAPINE [Suspect]
     Indication: SCHIZOPHRENIA
     Dosage: 200MG Q HS, ORAL
     Route: 048
     Dates: start: 20010721, end: 20030904
  3. AUGMENTIN '875' [Suspect]
     Dosage: 875MG BID, ORAL
     Route: 048
     Dates: start: 20030828, end: 20030906
  4. DIVALPROEX SODIUM [Concomitant]
  5. LEVOTHYROXINE SODIUM [Concomitant]
  6. POTASSIUM [Concomitant]
  7. FUROSEMIDE [Concomitant]

REACTIONS (1)
  - LEUKOPENIA [None]
